FAERS Safety Report 14438240 (Version 1)
Quarter: 2018Q1

REPORT INFORMATION
  Report Type: Spontaneous
  Country: US (occurrence: US)
  Receive Date: 20180125
  Receipt Date: 20180125
  Transmission Date: 20180509
  Serious: No
  Sender: FDA-Public Use
  Company Number: US-PFIZER INC-2017486524

PATIENT
  Age: 83 Year
  Sex: Female

DRUGS (5)
  1. PREMARIN [Suspect]
     Active Substance: ESTROGENS, CONJUGATED
     Dosage: 0.3 MG, 1X/DAY, (21 TIMES PER 28 DAYS ON CONSECUTIVE DAYS)
     Route: 048
  2. AMLODIPINE BESYLATE. [Concomitant]
     Active Substance: AMLODIPINE BESYLATE
     Dosage: 2.5 MG, 1X/DAY (1/2 TABLET OF 5MG, ONCE A DAY)
     Route: 048
     Dates: start: 20141112
  3. DIAZEPAM. [Concomitant]
     Active Substance: DIAZEPAM
     Dosage: 2.5 MG, 2X/DAY [1/2 TABLET (2.5MG)]
     Route: 048
     Dates: start: 20170317
  4. METOPROLOL. [Concomitant]
     Active Substance: METOPROLOL
     Dosage: 75 MG, 2X/DAY (3 TABLETS OF 25MG, 2 TIMES A DAY)
     Route: 048
     Dates: start: 20121102
  5. CEFACLOR. [Concomitant]
     Active Substance: CEFACLOR
     Dosage: 250 MG, 3X/DAY (EVERY EIGHT HOURS)
     Route: 048
     Dates: start: 20170112

REACTIONS (3)
  - Rhinorrhoea [Unknown]
  - Hypersensitivity [Unknown]
  - Blood pressure abnormal [Unknown]
